APPROVED DRUG PRODUCT: METHYLPHENIDATE HYDROCHLORIDE
Active Ingredient: METHYLPHENIDATE HYDROCHLORIDE
Strength: 54MG
Dosage Form/Route: TABLET, EXTENDED RELEASE;ORAL
Application: A204659 | Product #002
Applicant: STRIDES PHARMA INTERNATIONAL AG
Approved: Jul 15, 2019 | RLD: No | RS: No | Type: DISCN